FAERS Safety Report 7156404-X (Version None)
Quarter: 2010Q4

REPORT INFORMATION
  Report Type: 
  Country: None (occurrence: None)
  Receive Date: 20101214
  Receipt Date: 20101210
  Transmission Date: 20110411
  Serious: Yes (Life-Threatening)
  Sender: FDA-Public Use
  Company Number: FR-ROCHE-746030

PATIENT
  Age: 77 Year
  Sex: Male

DRUGS (6)
  1. KYTRIL [Suspect]
     Indication: CHEMOTHERAPY
     Dosage: FORM: INFUSION
     Route: 042
     Dates: start: 20101116
  2. ZANTAC [Suspect]
     Indication: CHEMOTHERAPY
     Dosage: STRENGTH: 50 MG/2ML, 50 MG ADMINISTERED OCCASIONALLY BEFORE CHEMOTHERAPY
     Route: 042
     Dates: start: 20101116
  3. SOLU-MEDROL [Suspect]
     Dosage: 80 MG ADMINISTERED OCCASIONALLY BEFORE CHEMOTHERAPY
     Route: 042
     Dates: start: 20101116
  4. PREVISCAN [Concomitant]
  5. SOTALOL [Concomitant]
     Dosage: DOSAGE REGIMEN: HALF-0-HALF
  6. CAPTOPRIL [Concomitant]

REACTIONS (1)
  - CARDIO-RESPIRATORY ARREST [None]
